FAERS Safety Report 21884254 (Version 1)
Quarter: 2023Q1

REPORT INFORMATION
  Report Type: Spontaneous
  Country: US (occurrence: US)
  Receive Date: 20230119
  Receipt Date: 20230119
  Transmission Date: 20230417
  Serious: Yes (Death, Hospitalization)
  Sender: FDA-Public Use
  Company Number: US-drreddys-LIT/USA/23/0159998

PATIENT
  Age: 73 Year
  Sex: Male
  Weight: 115 kg

DRUGS (9)
  1. DEXAMETHASONE [Suspect]
     Active Substance: DEXAMETHASONE
     Indication: COVID-19
     Dosage: 4 DOSES OF 100MG
     Route: 042
  2. DEXAMETHASONE [Suspect]
     Active Substance: DEXAMETHASONE
     Dosage: 4 DOSES OF 100MG
     Route: 042
  3. DEXAMETHASONE [Suspect]
     Active Substance: DEXAMETHASONE
     Dosage: 9 DOSES OF 6MG ORALLY
     Route: 048
  4. METOPROLOL SUCCINATE [Suspect]
     Active Substance: METOPROLOL SUCCINATE
     Indication: Prophylaxis
     Dosage: 100MG BY MOUTH EVERY MORNING AND 50MG BY MOUTH EVERY EVENING
     Route: 048
  5. HEPARIN SODIUM [Suspect]
     Active Substance: HEPARIN SODIUM
     Indication: Thrombosis
     Route: 042
  6. REMDESIVIR [Suspect]
     Active Substance: REMDESIVIR
     Indication: COVID-19
     Dosage: (1 DOSE OF 200MG IV, FOLLOWED BY 4DOSES OF 100MG IV)
     Route: 042
  7. REMDESIVIR [Suspect]
     Active Substance: REMDESIVIR
     Dosage: (1 DOSE OF 200MG IV, FOLLOWED BY 4DOSES OF 100MG IV)
     Route: 042
  8. DABIGATRAN [Suspect]
     Active Substance: DABIGATRAN
     Indication: Prophylaxis
     Dosage: BY MOUTH
     Route: 048
  9. FISH OIL [Concomitant]
     Active Substance: FISH OIL
     Indication: Product used for unknown indication

REACTIONS (5)
  - Death [Fatal]
  - Multiple organ dysfunction syndrome [Unknown]
  - Paraesthesia [Unknown]
  - Acute kidney injury [Unknown]
  - Product use in unapproved indication [Unknown]
